FAERS Safety Report 8967742 (Version 1)
Quarter: 2012Q4

REPORT INFORMATION
  Report Type: Spontaneous
  Country: US (occurrence: None)
  Receive Date: 20121213
  Receipt Date: 20121213
  Transmission Date: 20130627
  Serious: Yes (Other)
  Sender: FDA-Public Use
  Company Number: None

PATIENT
  Age: 53 Year
  Sex: Female

DRUGS (1)
  1. FORTEO [Suspect]
     Dosage: 20mcg  QD  SQ injection
     Route: 058
     Dates: start: 20111228, end: 20121207

REACTIONS (1)
  - Tooth disorder [None]
